FAERS Safety Report 11533635 (Version 1)
Quarter: 2015Q3

REPORT INFORMATION
  Report Type: Spontaneous
  Country: AT (occurrence: AT)
  Receive Date: 20150921
  Receipt Date: 20150921
  Transmission Date: 20151125
  Serious: Yes (Death)
  Sender: FDA-Public Use
  Company Number: AT-COREPHARMA LLC-2015COR00197

PATIENT
  Age: 84 Year
  Sex: Female

DRUGS (3)
  1. CITALOPRAM [Suspect]
     Active Substance: CITALOPRAM HYDROBROMIDE
     Dosage: UNK
  2. DOXEPIN [Suspect]
     Active Substance: DOXEPIN
  3. CITALOPRAM [Suspect]
     Active Substance: CITALOPRAM HYDROBROMIDE
     Dosage: 20 MG, 1X/DAY

REACTIONS (2)
  - Conduction disorder [Fatal]
  - Syncope [Fatal]
